FAERS Safety Report 7686035-4 (Version None)
Quarter: 2011Q3

REPORT INFORMATION
  Report Type: 
  Country: None (occurrence: None)
  Receive Date: 20110816
  Receipt Date: 20110803
  Transmission Date: 20111222
  Serious: No
  Sender: FDA-Public Use
  Company Number: US-PFIZER INC-2011177757

PATIENT
  Age: 73 Year
  Sex: Female

DRUGS (1)
  1. ATROPINE SULFATE, DIPHENOXYLATE HCL [Suspect]
     Indication: DIARRHOEA
     Dosage: UNK
     Route: 048

REACTIONS (2)
  - DEHYDRATION [None]
  - DRUG INEFFECTIVE [None]
